FAERS Safety Report 17825887 (Version 2)
Quarter: 2020Q3

REPORT INFORMATION
  Report Type: Spontaneous
  Country: US (occurrence: US)
  Receive Date: 20200526
  Receipt Date: 20200710
  Transmission Date: 20201102
  Serious: Yes (Other)
  Sender: FDA-Public Use
  Company Number: US-BAUSCH-BL-2020-015080

PATIENT
  Sex: Male

DRUGS (1)
  1. RETISERT [Suspect]
     Active Substance: FLUOCINOLONE ACETONIDE
     Indication: PRODUCT USED FOR UNKNOWN INDICATION
     Dosage: INTRAVITREAL IMPLANT
     Route: 065
     Dates: start: 20191024

REACTIONS (5)
  - Hypotony of eye [Unknown]
  - Drug ineffective [Unknown]
  - Post procedural complication [Unknown]
  - Cystoid macular oedema [Unknown]
  - Disease recurrence [Unknown]
